FAERS Safety Report 7814015-4 (Version None)
Quarter: 2011Q4

REPORT INFORMATION
  Report Type: 
  Country: None (occurrence: None)
  Receive Date: 20111014
  Receipt Date: 20111004
  Transmission Date: 20120403
  Serious: Yes (Death, Life-Threatening, Hospitalization, Other)
  Sender: FDA-Public Use
  Company Number: US-JNJFOC-20071003696

PATIENT
  Sex: Male
  Weight: 69 kg

DRUGS (15)
  1. HUMIRA [Suspect]
     Indication: IRRITABLE BOWEL SYNDROME
     Dates: start: 20061101
  2. PURINETHOL [Suspect]
     Dosage: ALSO REPORTED WITH START DATE OF 01-OCT-1999
     Dates: start: 19990602
  3. ASACOL [Concomitant]
     Dates: start: 19981015
  4. REMICADE [Suspect]
     Indication: COLITIS ULCERATIVE
     Dosage: 19 INFUSIONS ADMINISTERED BETWEEN 10-JUL-2002 AND 7-MAR-2006
     Route: 042
     Dates: start: 20020710, end: 20060307
  5. HUMIRA [Suspect]
     Dates: start: 20070615
  6. PURINETHOL [Suspect]
     Dosage: ALSO REPORTED WITH START DATE OF 01-OCT-1999
     Dates: start: 19990602
  7. PURINETHOL [Suspect]
     Indication: COLITIS ULCERATIVE
     Dates: end: 20070401
  8. HUMIRA [Suspect]
     Indication: COLITIS ULCERATIVE
     Dates: start: 20070615
  9. ASACOL [Concomitant]
     Dates: start: 20070305
  10. PURINETHOL [Suspect]
     Indication: INFLAMMATORY BOWEL DISEASE
     Dates: end: 20070401
  11. PREDNISONE [Concomitant]
     Indication: COLITIS ULCERATIVE
  12. PREDNISONE [Concomitant]
     Indication: INFLAMMATORY BOWEL DISEASE
  13. REMICADE [Suspect]
     Indication: INFLAMMATORY BOWEL DISEASE
     Dosage: 19 INFUSIONS ADMINISTERED BETWEEN 10-JUL-2002 AND 7-MAR-2006
     Route: 042
     Dates: start: 20020710, end: 20060307
  14. REMICADE [Suspect]
     Indication: CROHN'S DISEASE
     Dosage: 19 INFUSIONS ADMINISTERED BETWEEN 10-JUL-2002 AND 7-MAR-2006
     Route: 042
     Dates: start: 20020710, end: 20060307
  15. HUMIRA [Suspect]
     Dates: start: 20061101

REACTIONS (1)
  - HEPATOSPLENIC T-CELL LYMPHOMA [None]
